FAERS Safety Report 9306826 (Version 1)
Quarter: 2013Q1

REPORT INFORMATION
  Report Type: Spontaneous
  Country: KR (occurrence: None)
  Receive Date: 20130328
  Receipt Date: 20130328
  Transmission Date: 20140127
  Serious: Yes (Other)
  Sender: FDA-Public Use
  Company Number: PIN-2013-00001

PATIENT
  Sex: 0

DRUGS (1)
  1. PORFIMER SODIUM [Suspect]
     Dosage: 2 MG/KG IV
     Route: 042

REACTIONS (1)
  - Cholangitis [None]
